FAERS Safety Report 14773163 (Version 1)
Quarter: 2018Q2

REPORT INFORMATION
  Report Type: Spontaneous
  Country: US (occurrence: US)
  Receive Date: 20180418
  Receipt Date: 20180418
  Transmission Date: 20180711
  Serious: No
  Sender: FDA-Public Use
  Company Number: US-PFIZER INC-2018158614

PATIENT
  Sex: Female
  Weight: 82 kg

DRUGS (1)
  1. LYRICA [Suspect]
     Active Substance: PREGABALIN
     Dosage: 325 MG, ONCE A DAY
     Route: 048

REACTIONS (1)
  - Weight increased [Unknown]
